FAERS Safety Report 6545817-2 (Version None)
Quarter: 2010Q1

REPORT INFORMATION
  Report Type: 
  Country: None (occurrence: None)
  Receive Date: 20100121
  Receipt Date: 20100111
  Transmission Date: 20100710
  Serious: Yes (Death)
  Sender: FDA-Public Use
  Company Number: US-BAXTER-2008BH010321

PATIENT
  Age: 6 Year
  Sex: Female

DRUGS (3)
  1. HEPARIN SODIUM INJECTION [Suspect]
     Indication: INDWELLING CATHETER MANAGEMENT
     Route: 042
     Dates: start: 20080301, end: 20080401
  2. HEPARIN SODIUM INJECTION [Suspect]
     Route: 042
     Dates: start: 20071001, end: 20071201
  3. HEPARIN SODIUM INJECTION [Suspect]
     Route: 042
     Dates: start: 20071001, end: 20071201

REACTIONS (11)
  - ACUTE LEUKAEMIA [None]
  - ACUTE LYMPHOCYTIC LEUKAEMIA [None]
  - CARDIO-RESPIRATORY ARREST [None]
  - DECREASED APPETITE [None]
  - HEADACHE [None]
  - HYPOTENSION [None]
  - LETHARGY [None]
  - MEDULLOBLASTOMA [None]
  - NAUSEA [None]
  - SWELLING FACE [None]
  - VOMITING [None]
